FAERS Safety Report 20430593 (Version 1)
Quarter: 2022Q1

REPORT INFORMATION
  Report Type: Report from Study
  Country: FR (occurrence: FR)
  Receive Date: 20220204
  Receipt Date: 20220204
  Transmission Date: 20220423
  Serious: Yes (Life-Threatening, Hospitalization)
  Sender: FDA-Public Use
  Company Number: FR-SERVIER-S20011540

PATIENT

DRUGS (5)
  1. PEGASPARGASE [Suspect]
     Active Substance: PEGASPARGASE
     Indication: Acute lymphocytic leukaemia
     Dosage: 2090 IU, QD ON D12
     Route: 042
     Dates: start: 20200928, end: 20200928
  2. TN UNSPECIFIED [Concomitant]
     Indication: Acute lymphocytic leukaemia
     Dosage: 2 MG ON D8, D15, D22, AND D29
     Route: 042
     Dates: start: 20200925, end: 20201016
  3. TN UNSPECIFIED [Concomitant]
     Indication: Acute lymphocytic leukaemia
     Dosage: 50.7 MG ON D8, D15, D22, AND D29
     Route: 042
     Dates: start: 20200925, end: 20201016
  4. TN UNSPECIFIED [Concomitant]
     Indication: Acute lymphocytic leukaemia
     Dosage: 17 MG ON D8 TO D28
     Route: 048
     Dates: start: 20200925, end: 20201015
  5. TN UNSPECIFIED [Concomitant]
     Indication: Acute lymphocytic leukaemia
     Dosage: 15 MG ON D13
     Route: 037
     Dates: start: 20200930

REACTIONS (4)
  - Hepatic cytolysis [Recovering/Resolving]
  - Cholestasis [Recovering/Resolving]
  - Septic shock [Not Recovered/Not Resolved]
  - Large intestine infection [Not Recovered/Not Resolved]

NARRATIVE: CASE EVENT DATE: 20201020
